FAERS Safety Report 6132663-7 (Version None)
Quarter: 2009Q1

REPORT INFORMATION
  Report Type: 
  Country: None (occurrence: None)
  Receive Date: 20090324
  Receipt Date: 20090317
  Transmission Date: 20090719
  Serious: Yes (Hospitalization)
  Sender: FDA-Public Use
  Company Number: CLOF-1000462

PATIENT
  Age: 42 Year
  Sex: Male
  Weight: 130 kg

DRUGS (19)
  1. CLOLAR [Suspect]
     Indication: ACUTE MYELOID LEUKAEMIA
     Dosage: 85 MG, QDX5, INTRAVENOUS
     Route: 042
     Dates: start: 20081223, end: 20081227
  2. BUSULFAN (BUSULFAN) [Suspect]
     Indication: ACUTE MYELOID LEUKAEMIA
     Dosage: 300 MG, QDX4, INTRAVENOUS
     Route: 042
     Dates: start: 20081224, end: 20081227
  3. ACTIGALL [Concomitant]
  4. ACYCLOVIR [Concomitant]
  5. ABILIFY [Concomitant]
  6. WELLBUTRIN [Concomitant]
  7. CLOBETASOL (CLOBETASOL) [Concomitant]
  8. FLUCONAZOLE [Concomitant]
  9. KEPPRA [Concomitant]
  10. LAMICTAL [Concomitant]
  11. MAGNESIUM (MAGNESIUM) [Concomitant]
  12. NEURONTIN [Concomitant]
  13. PENTAMIDINE (PENTAMIDINE) [Concomitant]
  14. POTASSIUM CHLORIDE [Concomitant]
  15. PRILOSEC [Concomitant]
  16. RESTASIS (CICLOSPORIN) [Concomitant]
  17. TACROLIMUS [Concomitant]
  18. EFFEXOR XR [Concomitant]
  19. EFFEXOR XR [Concomitant]

REACTIONS (9)
  - ADRENAL INSUFFICIENCY [None]
  - BLOOD PRESSURE DECREASED [None]
  - BONE MARROW TRANSPLANT [None]
  - DEHYDRATION [None]
  - DIZZINESS [None]
  - HAEMATOCRIT DECREASED [None]
  - HAEMOGLOBIN DECREASED [None]
  - RED BLOOD CELL COUNT DECREASED [None]
  - WHITE BLOOD CELL COUNT DECREASED [None]
